FAERS Safety Report 24940700 (Version 1)
Quarter: 2025Q1

REPORT INFORMATION
  Report Type: Spontaneous
  Country: JP (occurrence: JP)
  Receive Date: 20250207
  Receipt Date: 20250207
  Transmission Date: 20250409
  Serious: Yes (Hospitalization, Other)
  Sender: PANACEA BIOTEC PHARMA LIMITED
  Company Number: JP-PBT-010110

PATIENT
  Age: 81 Year
  Sex: Female

DRUGS (17)
  1. TACROLIMUS [Interacting]
     Active Substance: TACROLIMUS
     Indication: Rheumatoid arthritis
     Dosage: 4 YEARS AGO
     Route: 048
  2. ENSITRELVIR [Interacting]
     Active Substance: ENSITRELVIR
     Indication: COVID-19
     Route: 048
  3. ABATACEPT [Suspect]
     Active Substance: ABATACEPT
     Indication: Rheumatoid arthritis
     Route: 042
  4. PREDNISOLONE [Suspect]
     Active Substance: PREDNISOLONE
     Indication: Rheumatoid arthritis-associated interstitial lung disease
     Route: 048
  5. ASPIRIN [Concomitant]
     Active Substance: ASPIRIN
     Indication: Product used for unknown indication
     Route: 048
  6. ESOMEPRAZOLE [Concomitant]
     Active Substance: ESOMEPRAZOLE
     Indication: Product used for unknown indication
     Route: 048
  7. DENOSUMAB [Concomitant]
     Active Substance: DENOSUMAB
     Indication: Product used for unknown indication
     Route: 058
  8. NICORANDIL [Concomitant]
     Active Substance: NICORANDIL
     Indication: Hypertension
     Route: 048
  9. RIVASTIGMINE [Concomitant]
     Active Substance: RIVASTIGMINE
     Indication: Dementia
     Route: 065
  10. ROSUVASTATIN [Concomitant]
     Active Substance: ROSUVASTATIN
     Indication: Hypertension
     Route: 048
  11. TACROLIMUS [Interacting]
     Active Substance: TACROLIMUS
     Indication: Rheumatoid arthritis
     Route: 048
  12. TACROLIMUS [Interacting]
     Active Substance: TACROLIMUS
     Indication: Rheumatoid arthritis
     Route: 048
  13. ENSITRELVIR [Interacting]
     Active Substance: ENSITRELVIR
     Indication: COVID-19
     Route: 048
  14. PREDNISOLONE [Suspect]
     Active Substance: PREDNISOLONE
     Indication: COVID-19 pneumonia
     Route: 048
  15. PREDNISOLONE [Suspect]
     Active Substance: PREDNISOLONE
     Indication: Sjogren^s syndrome
     Route: 048
  16. TACROLIMUS [Interacting]
     Active Substance: TACROLIMUS
     Indication: Rheumatoid arthritis
     Route: 048
  17. TACROLIMUS [Interacting]
     Active Substance: TACROLIMUS
     Indication: Rheumatoid arthritis
     Route: 048

REACTIONS (5)
  - Drug half-life increased [Recovered/Resolved]
  - Drug interaction [Unknown]
  - COVID-19 pneumonia [Recovering/Resolving]
  - Blood creatinine increased [Recovered/Resolved]
  - Product use in unapproved indication [Unknown]
